FAERS Safety Report 8788585 (Version 2)
Quarter: 2012Q4

REPORT INFORMATION
  Report Type: 
  Country: US (occurrence: US)
  Receive Date: 20120914
  Receipt Date: 20121211
  Transmission Date: 20130627
  Serious: No
  Sender: FDA-Public Use
  Company Number: US-VERTEX PHARMACEUTICAL INC.-AE-2012-012023

PATIENT
  Sex: Female
  Weight: 80 kg

DRUGS (3)
  1. VX-950 (TELAPREVIR) [Suspect]
     Indication: HEPATITIS C
     Dosage: 750 mg, tid
     Route: 048
     Dates: start: 201207
  2. PEGASYS [Concomitant]
     Indication: HEPATITIS C
     Dosage: 180 ?g, qw
     Route: 058
     Dates: start: 201207
  3. RIBAVIRIN [Concomitant]
     Indication: HEPATITIS C
     Dosage: 600 mg AM , 400 mg PM
     Route: 048
     Dates: start: 201207

REACTIONS (7)
  - Violence-related symptom [Unknown]
  - Memory impairment [Unknown]
  - Feeling abnormal [Unknown]
  - Crying [Unknown]
  - Back pain [Unknown]
  - Fatigue [Unknown]
  - Rash generalised [Unknown]
